FAERS Safety Report 7955125-0 (Version None)
Quarter: 2011Q4

REPORT INFORMATION
  Report Type: 
  Country: None (occurrence: None)
  Receive Date: 20111202
  Receipt Date: 20111130
  Transmission Date: 20120403
  Serious: Yes (Death)
  Sender: FDA-Public Use
  Company Number: GB-ABBOTT-11P-167-0879698-00

PATIENT
  Sex: Female

DRUGS (1)
  1. HUMIRA [Suspect]
     Indication: RHEUMATOID ARTHRITIS
     Route: 058
     Dates: start: 20071215, end: 20081015

REACTIONS (7)
  - MITRAL VALVE INCOMPETENCE [None]
  - CARDIAC FAILURE CONGESTIVE [None]
  - PULMONARY FIBROSIS [None]
  - ATRIAL FIBRILLATION [None]
  - RHEUMATOID ARTHRITIS [None]
  - DIVERTICULUM [None]
  - RENAL FAILURE [None]
